FAERS Safety Report 5765932-0 (Version None)
Quarter: 2008Q2

REPORT INFORMATION
  Report Type: 
  Country: None (occurrence: None)
  Receive Date: 20080611
  Receipt Date: 20070816
  Transmission Date: 20081010
  Serious: No
  Sender: FDA-Public Use
  Company Number: US-BRISTOL-MYERS SQUIBB COMPANY-13880034

PATIENT
  Age: 75 Year
  Sex: Male
  Weight: 84 kg

DRUGS (1)
  1. SINEMET [Suspect]
     Indication: PARKINSON'S DISEASE
     Dosage: PATIENT'S CURRENT DOSE IS CARBIDOPA/LEVADOPA 25MG/100MG EVERY DAY.
     Route: 048
     Dates: start: 19900101

REACTIONS (1)
  - BLEPHAROSPASM [None]
